FAERS Safety Report 10662090 (Version 1)
Quarter: 2014Q4

REPORT INFORMATION
  Report Type: Spontaneous
  Country: US (occurrence: US)
  Receive Date: 20141218
  Receipt Date: 20141218
  Transmission Date: 20150529
  Serious: No
  Sender: FDA-Public Use
  Company Number: US-PFIZER INC-2014343813

PATIENT
  Age: 56 Year
  Sex: Male

DRUGS (1)
  1. SUTENT [Suspect]
     Active Substance: SUNITINIB MALATE
     Dosage: 50 MG, CYCLIC (DAILY 4 WEEKS ON TWO WEEKS OFF)
     Route: 048
     Dates: start: 20140924

REACTIONS (3)
  - Fatigue [Unknown]
  - Yellow skin [Unknown]
  - Nausea [Unknown]

NARRATIVE: CASE EVENT DATE: 20141210
